FAERS Safety Report 6242434-9 (Version None)
Quarter: 2009Q2

REPORT INFORMATION
  Report Type: 
  Country: None (occurrence: None)
  Receive Date: 20090624
  Receipt Date: 20090616
  Transmission Date: 20091009
  Serious: Yes (Disabling)
  Sender: FDA-Public Use
  Company Number: FR-ASTRAZENECA-2009CG01255

PATIENT
  Age: 80 Year
  Sex: Male

DRUGS (6)
  1. CRESTOR [Suspect]
     Route: 048
     Dates: end: 20090312
  2. ARIXTRA [Interacting]
     Dosage: 7.5 MG / 0.6 ML
     Route: 058
     Dates: start: 20090305, end: 20090309
  3. PREVISCAN [Interacting]
     Route: 048
     Dates: start: 20090306, end: 20090309
  4. METFORMIN HCL [Concomitant]
  5. GLIMEPIRIDE [Concomitant]
  6. PERINDOPRIL ERBUMINE [Concomitant]

REACTIONS (3)
  - DRUG INTERACTION [None]
  - HAEMATOMA [None]
  - SHOCK [None]
